FAERS Safety Report 17485693 (Version 3)
Quarter: 2020Q1

REPORT INFORMATION
  Report Type: Report from Study
  Country: None (occurrence: CH)
  Receive Date: 20200302
  Receipt Date: 20200326
  Transmission Date: 20200409
  Serious: Yes (Hospitalization)
  Sender: FDA-Public Use
  Company Number: CH-ABBVIE-20K-151-3295191-00

PATIENT
  Sex: Female

DRUGS (6)
  1. DUODOPA [Suspect]
     Active Substance: CARBIDOPA\LEVODOPA
     Dosage: DOSE INCREASED
     Route: 050
     Dates: start: 202003
  2. DUODOPA [Suspect]
     Active Substance: CARBIDOPA\LEVODOPA
     Dosage: MD: 4.1 ML/H, CRD: 2.5 ML/H, CNR: 2.4 ML/H, ED: 3.0 ML
     Route: 050
     Dates: start: 20200305, end: 20200306
  3. DUODOPA [Suspect]
     Active Substance: CARBIDOPA\LEVODOPA
     Dosage: MD: 7.0 ML/H, CD RATE: 2.6 ML/H, CD NIGHT RATE 1.9 ML/H, ED: 1.0 ML?24H THERAPY
     Route: 050
     Dates: start: 20200121, end: 20200304
  4. DUODOPA [Suspect]
     Active Substance: CARBIDOPA\LEVODOPA
     Dosage: MD: 3.0 ML/H, CD DAY RATE: 2.5 ML/H, CD NIGHT RATE 1.6 ML/H, ED:2.0 ML?24H THERAPY
     Route: 050
     Dates: start: 20200115, end: 20200121
  5. DUODOPA [Suspect]
     Active Substance: CARBIDOPA\LEVODOPA
     Indication: PARKINSON^S DISEASE
     Route: 050
     Dates: start: 20200115, end: 20200115
  6. DUODOPA [Suspect]
     Active Substance: CARBIDOPA\LEVODOPA
     Dosage: DOSE DECREASED
     Route: 050
     Dates: start: 20200306, end: 202003

REACTIONS (4)
  - Gastrointestinal infection [Recovered/Resolved]
  - Underdose [Recovered/Resolved]
  - Dyskinesia [Recovered/Resolved]
  - Hyperkinesia [Recovered/Resolved]
